FAERS Safety Report 5678020-9 (Version None)
Quarter: 2008Q1

REPORT INFORMATION
  Report Type: 
  Country: None (occurrence: None)
  Receive Date: 20080324
  Receipt Date: 20080324
  Transmission Date: 20080703
  Serious: Yes (Other)
  Sender: FDA-Public Use
  Company Number: None

PATIENT
  Age: 34 Year
  Sex: Female
  Weight: 72.5755 kg

DRUGS (1)
  1. STRATTERA [Suspect]
     Indication: WRONG DRUG ADMINISTERED
     Dates: start: 20080312, end: 20080318

REACTIONS (12)
  - DEPRESSION [None]
  - DIZZINESS [None]
  - DRUG DISPENSING ERROR [None]
  - DRUG DOSE OMISSION [None]
  - DRUG TOXICITY [None]
  - EMOTIONAL DISTRESS [None]
  - MEDICATION ERROR [None]
  - PHARMACEUTICAL PRODUCT COMPLAINT [None]
  - SUICIDAL IDEATION [None]
  - VISION BLURRED [None]
  - VOMITING [None]
  - WRONG DRUG ADMINISTERED [None]
